FAERS Safety Report 5201786-9 (Version None)
Quarter: 2007Q1

REPORT INFORMATION
  Report Type: 
  Country: None (occurrence: None)
  Receive Date: 20070104
  Receipt Date: 20061220
  Transmission Date: 20070707
  Serious: Yes (Death, Life-Threatening, Hospitalization)
  Sender: FDA-Public Use
  Company Number: GXKR2006TR08430

PATIENT
  Sex: Female

DRUGS (2)
  1. NAPROXEN [Suspect]
     Indication: DRUG USE FOR UNKNOWN INDICATION
     Dosage: MATERNAL DOSE: 1100 MG DAILY, TRANSPLACENTAL
     Route: 064
  2. FLUCONAZOLE [Concomitant]

REACTIONS (16)
  - AUTOSOMAL CHROMOSOME ANOMALY [None]
  - BLOOD CULTURE POSITIVE [None]
  - CANDIDIASIS [None]
  - DISSEMINATED INTRAVASCULAR COAGULATION [None]
  - DRUG EXPOSURE DURING PREGNANCY [None]
  - GENERALISED OEDEMA [None]
  - ILEITIS [None]
  - INTESTINAL PERFORATION [None]
  - JOINT CONTRACTURE [None]
  - NEONATAL ANURIA [None]
  - NEONATAL DISORDER [None]
  - OLIGOHYDRAMNIOS [None]
  - PERITONEAL DIALYSIS [None]
  - RENAL APLASIA [None]
  - RENAL TUBULAR DISORDER [None]
  - SEPSIS NEONATAL [None]
